FAERS Safety Report 25169833 (Version 1)
Quarter: 2025Q2

REPORT INFORMATION
  Report Type: Spontaneous
  Country: US (occurrence: US)
  Receive Date: 20250407
  Receipt Date: 20250407
  Transmission Date: 20250717
  Serious: No
  Sender: VERTEX
  Company Number: US-VERTEX PHARMACEUTICALS-2025-004933

PATIENT
  Age: 83 Year
  Sex: Male

DRUGS (2)
  1. JOURNAVX [Suspect]
     Active Substance: SUZETRIGINE
     Indication: Neuropathy peripheral
     Route: 048
     Dates: start: 20250319
  2. JOURNAVX [Suspect]
     Active Substance: SUZETRIGINE
     Indication: Arthralgia

REACTIONS (2)
  - Arthralgia [Unknown]
  - Off label use [Unknown]

NARRATIVE: CASE EVENT DATE: 20250319
